FAERS Safety Report 18581559 (Version 1)
Quarter: 2020Q4

REPORT INFORMATION
  Report Type: Spontaneous
  Country: CN (occurrence: CN)
  Receive Date: 20201204
  Receipt Date: 20201204
  Transmission Date: 20210114
  Serious: Yes (Hospitalization)
  Sender: FDA-Public Use
  Company Number: CN-BAYER-2020-264367

PATIENT
  Age: 70 Year
  Sex: Male

DRUGS (1)
  1. GLUCOBAY [Suspect]
     Active Substance: ACARBOSE
     Indication: GLOMERULONEPHRITIS CHRONIC
     Dosage: 1 DF, QD
     Route: 048
     Dates: start: 20201007, end: 20201009

REACTIONS (5)
  - Off label use [None]
  - Pollakiuria [None]
  - Micturition urgency [None]
  - Hypersensitivity [Recovering/Resolving]
  - Product use in unapproved indication [None]

NARRATIVE: CASE EVENT DATE: 20201008
